FAERS Safety Report 12100015 (Version 1)
Quarter: 2016Q1

REPORT INFORMATION
  Report Type: Spontaneous
  Country: US (occurrence: None)
  Receive Date: 20160219
  Receipt Date: 20160219
  Transmission Date: 20160526
  Serious: Yes (Disabling, Other)
  Sender: FDA-Public Use
  Company Number: None

PATIENT
  Age: 61 Year
  Sex: Male
  Weight: 112.49 kg

DRUGS (4)
  1. VALSARTAN HCT [Suspect]
     Active Substance: HYDROCHLOROTHIAZIDE\VALSARTAN
     Indication: HYPERTENSION
     Route: 048
     Dates: start: 20160107, end: 20160216
  2. DIOVAN/HCT [Concomitant]
  3. ALIVE MULTI VITAMIN [Concomitant]
  4. LIALDA [Concomitant]
     Active Substance: MESALAMINE

REACTIONS (7)
  - Eye swelling [None]
  - Back pain [None]
  - Visual impairment [None]
  - Lacrimation increased [None]
  - Joint swelling [None]
  - Product substitution issue [None]
  - Renal pain [None]

NARRATIVE: CASE EVENT DATE: 20160218
